FAERS Safety Report 4709538-0 (Version None)
Quarter: 2005Q3

REPORT INFORMATION
  Report Type: 
  Country: None (occurrence: None)
  Receive Date: 20050707
  Receipt Date: 20050623
  Transmission Date: 20060218
  Serious: Yes (Hospitalization, Other)
  Sender: FDA-Public Use
  Company Number: 17091-2

PATIENT
  Age: 70 Year
  Sex: Male
  Weight: 78.0187 kg

DRUGS (1)
  1. DAUNORUBICIN HCL [Suspect]
     Indication: ACUTE MYELOID LEUKAEMIA
     Dosage: 45MG/M2 OTHER
     Dates: start: 20050209

REACTIONS (3)
  - HYPOALBUMINAEMIA [None]
  - HYPOCALCAEMIA [None]
  - PYREXIA [None]
